FAERS Safety Report 5342751-0 (Version None)
Quarter: 2007Q2

REPORT INFORMATION
  Report Type: 
  Country: None (occurrence: None)
  Receive Date: 20070601
  Receipt Date: 20070522
  Transmission Date: 20071010
  Serious: Yes (Life-Threatening, Hospitalization, Disabling, Other)
  Sender: FDA-Public Use
  Company Number: US-ABBOTT-07P-163-0369350-00

PATIENT
  Age: 36 Year
  Sex: Male

DRUGS (13)
  1. CEFDINIR [Suspect]
     Indication: PHARYNGITIS
     Route: 065
  2. LAMOTRIGINE [Suspect]
     Indication: BIPOLAR DISORDER
     Route: 048
     Dates: start: 20061023, end: 20061105
  3. LAMOTRIGINE [Suspect]
     Route: 048
     Dates: start: 20061105
  4. LAMOTRIGINE [Suspect]
     Route: 048
     Dates: end: 20061121
  5. METHYLPREDNISOLONE 16MG TAB [Suspect]
     Indication: DRUG USE FOR UNKNOWN INDICATION
     Route: 065
  6. VICODIN [Suspect]
     Indication: PAIN
     Route: 065
  7. VICODIN [Suspect]
     Indication: ORAL MUCOSAL BLISTERING
  8. AZITHROMYCIN [Suspect]
     Indication: DRUG USE FOR UNKNOWN INDICATION
     Route: 065
  9. SERTRALINE HYDROCHLORIDE [Concomitant]
     Indication: DRUG USE FOR UNKNOWN INDICATION
  10. MOMETASONE FUROATE [Concomitant]
     Indication: DRUG USE FOR UNKNOWN INDICATION
  11. SUMATRIPTAN SUCCINATE [Concomitant]
     Indication: DRUG USE FOR UNKNOWN INDICATION
  12. HYDROCHLOROTHIAZIDE [Concomitant]
     Indication: DRUG USE FOR UNKNOWN INDICATION
  13. STEROID [Concomitant]
     Indication: DRUG USE FOR UNKNOWN INDICATION

REACTIONS (8)
  - BLINDNESS [None]
  - CONJUNCTIVAL SCAR [None]
  - LIP SWELLING [None]
  - OEDEMA PERIPHERAL [None]
  - ORAL MUCOSAL BLISTERING [None]
  - PHARYNGITIS [None]
  - RASH PRURITIC [None]
  - STEVENS-JOHNSON SYNDROME [None]
